FAERS Safety Report 5753602-4 (Version None)
Quarter: 2008Q2

REPORT INFORMATION
  Report Type: 
  Country: None (occurrence: None)
  Receive Date: 20080530
  Receipt Date: 20080523
  Transmission Date: 20081010
  Serious: Yes (Hospitalization)
  Sender: FDA-Public Use
  Company Number: US-JNJFOC-20070600196

PATIENT
  Sex: Female
  Weight: 68.04 kg

DRUGS (8)
  1. DURAGESIC-100 [Suspect]
     Route: 062
  2. DURAGESIC-100 [Suspect]
     Route: 062
  3. DURAGESIC-100 [Suspect]
     Indication: BACK PAIN
     Route: 062
  4. ACTIVELLA [Concomitant]
     Indication: HORMONE REPLACEMENT THERAPY
     Route: 048
  5. XANAX [Concomitant]
     Indication: DEPRESSION
     Route: 048
  6. LORTAB [Concomitant]
     Indication: BREAKTHROUGH PAIN
     Route: 048
  7. PERCOCET [Concomitant]
     Indication: BREAKTHROUGH PAIN
     Route: 048
  8. CLIMARA [Concomitant]
     Indication: HORMONE REPLACEMENT THERAPY
     Route: 062

REACTIONS (25)
  - AMNESIA [None]
  - ANXIETY [None]
  - APPLICATION SITE REACTION [None]
  - BACK DISORDER [None]
  - BACK PAIN [None]
  - BRUXISM [None]
  - CYST [None]
  - DEPRESSION [None]
  - DRUG ADMINISTERED AT INAPPROPRIATE SITE [None]
  - DRUG EFFECT DECREASED [None]
  - DRUG INEFFECTIVE [None]
  - GAIT DISTURBANCE [None]
  - HYPERTENSION [None]
  - INCORRECT DRUG ADMINISTRATION DURATION [None]
  - MEMORY IMPAIRMENT [None]
  - MUSCULOSKELETAL STIFFNESS [None]
  - PAIN [None]
  - PHARMACEUTICAL PRODUCT COMPLAINT [None]
  - RESTLESS LEGS SYNDROME [None]
  - SENSORY DISTURBANCE [None]
  - SLEEP DISORDER [None]
  - SWELLING [None]
  - TOOTH FRACTURE [None]
  - WEIGHT INCREASED [None]
  - WRONG TECHNIQUE IN DRUG USAGE PROCESS [None]
